FAERS Safety Report 9467869 (Version 1)
Quarter: 2013Q3

REPORT INFORMATION
  Report Type: Spontaneous
  Country: US (occurrence: US)
  Receive Date: 20130821
  Receipt Date: 20130821
  Transmission Date: 20140515
  Serious: Yes (Other)
  Sender: FDA-Public Use
  Company Number: US-GENZYME-MIPO-1000472

PATIENT
  Sex: Female

DRUGS (1)
  1. KYNAMRO [Suspect]
     Indication: TYPE IIA HYPERLIPIDAEMIA
     Dosage: 200 MG, QW
     Route: 058
     Dates: start: 20130718

REACTIONS (2)
  - Presyncope [Unknown]
  - Palpitations [Unknown]
